FAERS Safety Report 18304773 (Version 1)
Quarter: 2020Q3

REPORT INFORMATION
  Report Type: Spontaneous
  Country: DE (occurrence: DE)
  Receive Date: 20200923
  Receipt Date: 20200923
  Transmission Date: 20201103
  Serious: Yes (Other)
  Sender: FDA-Public Use
  Company Number: NVSC2020DE254930

PATIENT
  Sex: Male

DRUGS (1)
  1. DESLORATADIN HEXAL 5 MG FILMTABLETTEN [Suspect]
     Active Substance: DESLORATADINE
     Indication: HISTAMINE INTOLERANCE
     Dosage: UNK UNK, QD
     Route: 065
     Dates: start: 20200824, end: 20200914

REACTIONS (5)
  - Palpitations [Recovering/Resolving]
  - Tremor [Recovering/Resolving]
  - Nausea [Recovering/Resolving]
  - Dyspnoea [Recovering/Resolving]
  - Blood pressure decreased [Recovering/Resolving]

NARRATIVE: CASE EVENT DATE: 20200827
